FAERS Safety Report 24885844 (Version 1)
Quarter: 2025Q1

REPORT INFORMATION
  Report Type: Spontaneous
  Country: AU (occurrence: AU)
  Receive Date: 20250125
  Receipt Date: 20250125
  Transmission Date: 20250408
  Serious: Yes (Other)
  Sender: ALEXION PHARMACEUTICALS
  Company Number: AU-AstraZeneca-CH-00788391A

PATIENT

DRUGS (1)
  1. FASENRA [Suspect]
     Active Substance: BENRALIZUMAB
     Indication: Product used for unknown indication

REACTIONS (2)
  - Renal impairment [Unknown]
  - Blood urine present [Unknown]
